FAERS Safety Report 9679092 (Version 2)
Quarter: 2013Q4

REPORT INFORMATION
  Report Type: Spontaneous
  Country: CA (occurrence: CA)
  Receive Date: 20131108
  Receipt Date: 20131108
  Transmission Date: 20140711
  Serious: Yes (Death)
  Sender: FDA-Public Use
  Company Number: CA-GE HEALTHCARE MEDICAL DIAGNOSTICS-VISP-PR-1003S-0146

PATIENT
  Age: 56 Year
  Sex: Male
  Weight: 95.34 kg

DRUGS (2)
  1. VISIPAQUE [Suspect]
     Indication: RENAL CANCER
     Route: 042
     Dates: start: 20100319, end: 20100319
  2. VISIPAQUE [Suspect]
     Indication: DIAGNOSTIC PROCEDURE

REACTIONS (3)
  - Ventricular fibrillation [Fatal]
  - Anaphylactic reaction [Fatal]
  - Cardiac arrest [Fatal]
